FAERS Safety Report 4676439-6 (Version None)
Quarter: 2005Q2

REPORT INFORMATION
  Report Type: 
  Country: None (occurrence: None)
  Receive Date: 20050527
  Receipt Date: 20050519
  Transmission Date: 20051028
  Serious: Yes (Hospitalization, Disabling)
  Sender: FDA-Public Use
  Company Number: US-MERCK-0505USA02406

PATIENT
  Sex: Male

DRUGS (11)
  1. ZOCOR [Suspect]
     Indication: BLOOD CHOLESTEROL INCREASED
     Route: 048
     Dates: start: 20040101
  2. MESTINON [Concomitant]
     Route: 065
  3. LANTUS [Concomitant]
     Indication: DIABETES MELLITUS
     Route: 065
  4. NATEGLINIDE [Concomitant]
     Route: 065
  5. FOSAMAX [Concomitant]
     Indication: OSTEOPOROSIS
     Route: 065
  6. PLAVIX [Concomitant]
     Route: 065
  7. MAGNESIUM OXIDE [Concomitant]
     Route: 065
  8. LASIX [Concomitant]
     Route: 065
  9. POTASSIUM CHLORIDE [Concomitant]
     Route: 065
  10. PREDNISONE [Concomitant]
     Route: 065
  11. PROTONIX [Concomitant]
     Route: 065

REACTIONS (2)
  - GASTRIC DISORDER [None]
  - PNEUMONIA [None]
